FAERS Safety Report 4602834-7 (Version None)
Quarter: 2005Q1

REPORT INFORMATION
  Report Type: 
  Country: None (occurrence: None)
  Receive Date: 20050307
  Receipt Date: 20050228
  Transmission Date: 20050727
  Serious: Yes (Hospitalization)
  Sender: FDA-Public Use
  Company Number: DEWYE463828FEB05

PATIENT
  Age: 17 Year
  Sex: Female

DRUGS (6)
  1. FEMIGOA (LEVONORGESTREL/ ETHINYL ESTRADIOL, TABLET, 0) [Suspect]
     Dosage: ORAL
     Route: 048
     Dates: start: 20050226, end: 20050226
  2. ALCOHOL (ETHANOL, , 0) [Suspect]
     Dosage: ORAL
     Route: 048
     Dates: start: 20050226, end: 20050226
  3. COTRIM FORTE-RATIOPHARM (SULFAMETHOXAZOLE/TRIMETHOPRIM, , 0) [Suspect]
     Dosage: ORAL
     Route: 048
     Dates: start: 20050226, end: 20050226
  4. IBUPROFEN [Suspect]
     Dosage: ORAL
     Route: 048
     Dates: start: 20050226, end: 20050226
  5. PARACETAMOL (PARACETAMOL, , 0) [Suspect]
     Dosage: 20 TABLETS (OVERDOSE AMOUNT: 10 G) ORAL
     Route: 048
     Dates: start: 20050226, end: 20050226
  6. PENICILLIN [Suspect]
     Dosage: ORAL
     Route: 048
     Dates: start: 20050226, end: 20050226

REACTIONS (2)
  - BLOOD CREATINE PHOSPHOKINASE INCREASED [None]
  - INTENTIONAL MISUSE [None]
